FAERS Safety Report 22197705 (Version 3)
Quarter: 2023Q2

REPORT INFORMATION
  Report Type: Spontaneous
  Country: AR (occurrence: AR)
  Receive Date: 20230411
  Receipt Date: 20230501
  Transmission Date: 20230721
  Serious: Yes (Hospitalization)
  Sender: FDA-Public Use
  Company Number: AR-BIOMARINAP-AR-2023-149676

PATIENT

DRUGS (2)
  1. VIMIZIM [Suspect]
     Active Substance: ELOSULFASE ALFA
     Indication: Mucopolysaccharidosis IV
     Dosage: 2 MILLIGRAM/KILOGRAM, QW
     Route: 042
     Dates: start: 202205
  2. VIMIZIM [Suspect]
     Active Substance: ELOSULFASE ALFA
     Dosage: UNK, QW
     Route: 042
     Dates: start: 20220301

REACTIONS (5)
  - Bronchospasm [Recovered/Resolved]
  - Respiratory syncytial virus infection [Recovered/Resolved]
  - Pyrexia [Recovered/Resolved]
  - Cough [Recovered/Resolved]
  - Catarrh [Recovered/Resolved]

NARRATIVE: CASE EVENT DATE: 20230405
